FAERS Safety Report 25698836 (Version 2)
Quarter: 2025Q3

REPORT INFORMATION
  Report Type: Report from Study
  Country: TW (occurrence: TW)
  Receive Date: 20250819
  Receipt Date: 20250831
  Transmission Date: 20251020
  Serious: Yes (Hospitalization)
  Sender: ABBVIE
  Company Number: TW-ABBVIE-6416652

PATIENT
  Age: 74 Year
  Sex: Female
  Weight: 56 kg

DRUGS (1)
  1. SKYRIZI [Suspect]
     Active Substance: RISANKIZUMAB-RZAA
     Indication: Psoriasis
     Route: 058
     Dates: start: 20240410, end: 20250611

REACTIONS (2)
  - Endometrial cancer [Recovering/Resolving]
  - Vaginal haemorrhage [Unknown]

NARRATIVE: CASE EVENT DATE: 20250731
